FAERS Safety Report 15713810 (Version 1)
Quarter: 2018Q4

REPORT INFORMATION
  Report Type: Spontaneous
  Country: US (occurrence: US)
  Receive Date: 20181206
  Receipt Date: 20181206
  Transmission Date: 20190205
  Serious: Yes (Hospitalization)
  Sender: FDA-Public Use
  Company Number: None

PATIENT
  Sex: Male

DRUGS (30)
  1. FOLIC ACID. [Concomitant]
     Active Substance: FOLIC ACID
  2. PULMOZIME [Concomitant]
  3. CARNITOR [Concomitant]
     Active Substance: LEVOCARNITINE
  4. MITFORMIN [Concomitant]
  5. PROBIOITIC [Concomitant]
  6. METHYLCOBALAPOW [Concomitant]
  7. OSTERA [Concomitant]
  8. VITAMIN D3 [Concomitant]
     Active Substance: CHOLECALCIFEROL
  9. TOBI [Suspect]
     Active Substance: TOBRAMYCIN
     Indication: CYSTIC FIBROSIS
     Dates: start: 20180322
  10. GLUTHANE [Concomitant]
  11. N UTRISOURSE [Concomitant]
  12. PULMOZYME [Suspect]
     Active Substance: DORNASE ALFA
  13. ULTRA B-100 [Concomitant]
  14. BENADRYL [Concomitant]
     Active Substance: DIPHENHYDRAMINE HYDROCHLORIDE
  15. CRANBERRY. [Concomitant]
     Active Substance: CRANBERRY
  16. DHA [Concomitant]
     Active Substance: DIETARY SUPPLEMENT
  17. LECITHIN [Concomitant]
     Active Substance: LECITHIN
  18. QVAR [Concomitant]
     Active Substance: BECLOMETHASONE DIPROPIONATE
  19. XOPENENEX [Concomitant]
  20. ASTRAGALLUS POWROOT [Concomitant]
  21. NYSTAN [Concomitant]
     Active Substance: NYSTATIN
  22. POLYSACCAHRI CAP [Concomitant]
  23. SODIUM CHLOR [Concomitant]
     Active Substance: SODIUM CHLORIDE
  24. SPIRONOLAT [Concomitant]
  25. TORSEMIDE. [Concomitant]
     Active Substance: TORSEMIDE
  26. ZINC CHLORIDE [Concomitant]
     Active Substance: ZINC CHLORIDE
  27. MIZENTRA [Concomitant]
  28. LACTULOSA [Concomitant]
     Active Substance: LACTULOSE
  29. NADH [Concomitant]
     Active Substance: NADH
  30. PREVACID [Concomitant]
     Active Substance: LANSOPRAZOLE

REACTIONS (1)
  - Pneumonia [None]
